FAERS Safety Report 8272530-6 (Version None)
Quarter: 2012Q2

REPORT INFORMATION
  Report Type: 
  Country: None (occurrence: None)
  Receive Date: 20120410
  Receipt Date: 20120404
  Transmission Date: 20120825
  Serious: Yes (Other)
  Sender: FDA-Public Use
  Company Number: US-ROCHE-1013745

PATIENT
  Sex: Female

DRUGS (2)
  1. RITUXAN [Suspect]
     Indication: CHRONIC LYMPHOCYTIC LEUKAEMIA
     Dosage: FREQUENCY: WEEKLY X 4 EVERY 6 MONTHS
     Route: 042
  2. RITUXAN [Suspect]

REACTIONS (1)
  - EXTRAVASATION [None]
